FAERS Safety Report 6438160-3 (Version None)
Quarter: 2009Q4

REPORT INFORMATION
  Report Type: 
  Country: None (occurrence: None)
  Receive Date: 20091109
  Receipt Date: 20091026
  Transmission Date: 20100525
  Serious: Yes (Other)
  Sender: FDA-Public Use
  Company Number: MC200900101

PATIENT

DRUGS (4)
  1. ANGIOMAX [Suspect]
     Indication: PERCUTANEOUS CORONARY INTERVENTION
     Dosage: SEE IMAGE
     Route: 040
  2. ASPIRIN [Suspect]
     Dosage: 100 MG, QD
  3. CLOPIDOGREL [Suspect]
     Dosage: 300 MG, SINGLE
  4. INSULIN AND/OR ORAL ANTIDIABETIC AGENTS [Concomitant]

REACTIONS (8)
  - GASTROINTESTINAL HAEMORRHAGE [None]
  - GINGIVAL BLEEDING [None]
  - HAEMOGLOBIN DECREASED [None]
  - HAEMORRHAGE [None]
  - MYOCARDIAL INFARCTION [None]
  - PUNCTURE SITE HAEMORRHAGE [None]
  - REPERFUSION INJURY [None]
  - UROGENITAL HAEMORRHAGE [None]
